FAERS Safety Report 17004848 (Version 1)
Quarter: 2019Q4

REPORT INFORMATION
  Report Type: Spontaneous
  Country: US (occurrence: US)
  Receive Date: 20191107
  Receipt Date: 20191107
  Transmission Date: 20200122
  Serious: Yes (Other)
  Sender: FDA-Public Use
  Company Number: US-GLAXOSMITHKLINE-US2019200794

PATIENT

DRUGS (3)
  1. THERAFLU EXPRESSMAX SEVERE COLD AND FLU SYRUP [Suspect]
     Active Substance: ACETAMINOPHEN\DEXTROMETHORPHAN HYDROBROMIDE\GUAIFENESIN\PHENYLEPHRINE HYDROCHLORIDE
     Indication: OROPHARYNGEAL PAIN
  2. THERAFLU EXPRESSMAX SEVERE COLD AND FLU SYRUP [Suspect]
     Active Substance: ACETAMINOPHEN\DEXTROMETHORPHAN HYDROBROMIDE\GUAIFENESIN\PHENYLEPHRINE HYDROCHLORIDE
     Indication: RHINORRHOEA
     Dosage: UNK
  3. THERAFLU EXPRESSMAX SEVERE COLD AND FLU SYRUP [Suspect]
     Active Substance: ACETAMINOPHEN\DEXTROMETHORPHAN HYDROBROMIDE\GUAIFENESIN\PHENYLEPHRINE HYDROCHLORIDE
     Indication: NASAL CONGESTION

REACTIONS (4)
  - Loss of consciousness [Unknown]
  - Drug effective for unapproved indication [Unknown]
  - Euphoric mood [Unknown]
  - Product use in unapproved indication [Unknown]
